FAERS Safety Report 6609730-4 (Version None)
Quarter: 2010Q1

REPORT INFORMATION
  Report Type: 
  Country: None (occurrence: None)
  Receive Date: 20100302
  Receipt Date: 20100219
  Transmission Date: 20100710
  Serious: Yes (Other)
  Sender: FDA-Public Use
  Company Number: US-SANOFI-AVENTIS-2010SA010680

PATIENT
  Age: 77 Year
  Sex: Male

DRUGS (4)
  1. LANTUS [Suspect]
     Indication: DIABETES MELLITUS
     Dosage: DOSE:44 UNIT(S)
     Route: 058
     Dates: start: 20010101
  2. APIDRA [Suspect]
     Indication: DIABETES MELLITUS
     Dosage: DOSE:5 UNIT(S)
     Route: 058
     Dates: start: 20060101
  3. OPTICLICK [Suspect]
     Indication: DIABETES MELLITUS
  4. HUMALOG [Concomitant]

REACTIONS (2)
  - ALTERED VISUAL DEPTH PERCEPTION [None]
  - BLINDNESS UNILATERAL [None]
